FAERS Safety Report 18107237 (Version 1)
Quarter: 2020Q3

REPORT INFORMATION
  Report Type: Spontaneous
  Country: JP (occurrence: JP)
  Receive Date: 20200804
  Receipt Date: 20200804
  Transmission Date: 20201103
  Serious: Yes (Other)
  Sender: FDA-Public Use
  Company Number: JP-TEVA-2020-JP-004959J

PATIENT
  Age: 8 Year
  Sex: Male
  Weight: 23 kg

DRUGS (19)
  1. METHOTREXATE. [Suspect]
     Active Substance: METHOTREXATE
     Dosage: 880 MILLIGRAM DAILY;
     Route: 042
     Dates: start: 20200203
  2. NONTHRON [Concomitant]
     Route: 065
  3. COSOPT [Concomitant]
     Active Substance: DORZOLAMIDE HYDROCHLORIDE\TIMOLOL MALEATE
     Route: 065
  4. MIDAZOLAM. [Concomitant]
     Active Substance: MIDAZOLAM
     Route: 065
  5. SOSEGON [Concomitant]
     Active Substance: PENTAZOCINE
     Route: 065
  6. XYLOCAINE [Concomitant]
     Active Substance: LIDOCAINE HYDROCHLORIDE
     Route: 065
     Dates: start: 20200615, end: 20200615
  7. DAIPHEN [Concomitant]
     Active Substance: SULFAMETHOXAZOLE\TRIMETHOPRIM
     Route: 065
  8. LEUNASE [Concomitant]
     Active Substance: ASPARAGINASE
     Route: 065
     Dates: start: 20200615, end: 20200615
  9. SELENICA?R [Concomitant]
     Active Substance: VALPROATE SODIUM
     Route: 065
  10. GRANISETRON [Concomitant]
     Active Substance: GRANISETRON
     Route: 065
  11. PICOSULFATE NA [Concomitant]
     Active Substance: SODIUM PICOSULFATE
     Route: 065
  12. METOCLOPRAMIDE INJECTION 10MG ^TEVA^ [Suspect]
     Active Substance: METOCLOPRAMIDE
     Dosage: 10 MILLIGRAM DAILY;
     Route: 042
     Dates: start: 20200615, end: 20200619
  13. DEXART [Concomitant]
     Active Substance: DEXAMETHASONE SODIUM PHOSPHATE
     Route: 065
     Dates: start: 20200615
  14. ATARAX?P [Concomitant]
     Active Substance: HYDROXYZINE HYDROCHLORIDE
     Route: 065
  15. METHOTREXATE. [Suspect]
     Active Substance: METHOTREXATE
     Indication: ACUTE LYMPHOCYTIC LEUKAEMIA
     Dosage: 880 MILLIGRAM DAILY;
     Route: 042
     Dates: start: 20191216, end: 20200202
  16. ONCOVIN [Concomitant]
     Active Substance: VINCRISTINE SULFATE
     Route: 065
     Dates: start: 20200615, end: 20200615
  17. METOCLOPRAMIDE INJECTION 10MG ^TEVA^ [Suspect]
     Active Substance: METOCLOPRAMIDE
     Indication: NAUSEA
     Dosage: 10 MILLIGRAM DAILY;
     Route: 042
     Dates: start: 20200218, end: 20200225
  18. LEUNASE [Concomitant]
     Active Substance: ASPARAGINASE
     Route: 065
     Dates: start: 20200618, end: 20200618
  19. XYLOCAINE [Concomitant]
     Active Substance: LIDOCAINE HYDROCHLORIDE
     Route: 065
     Dates: start: 20200618, end: 20200618

REACTIONS (2)
  - Toxic encephalopathy [Unknown]
  - Oculogyric crisis [Recovered/Resolved]

NARRATIVE: CASE EVENT DATE: 20200224
